FAERS Safety Report 5431765-8 (Version None)
Quarter: 2007Q3

REPORT INFORMATION
  Report Type: 
  Country: None (occurrence: None)
  Receive Date: 20070830
  Receipt Date: 20070820
  Transmission Date: 20080115
  Serious: Yes (Hospitalization, Other)
  Sender: FDA-Public Use
  Company Number: US-SHR-US-2007-020806

PATIENT
  Age: 70 Year
  Sex: Female
  Weight: 77.098 kg

DRUGS (25)
  1. BETASERON [Suspect]
     Indication: SECONDARY PROGRESSIVE MULTIPLE SCLEROSIS
     Dosage: 2 MIU, EVERY 2D
     Route: 058
     Dates: start: 20070602
  2. BETASERON [Suspect]
     Dosage: 4 MIU, EVERY 2D
     Route: 058
     Dates: start: 20070616
  3. BETASERON [Suspect]
     Dosage: 6 MIU, 2 DOSES
     Route: 058
  4. BETASERON [Suspect]
     Dosage: 2 MIU, EVERY 2D
     Route: 058
  5. BETASERON [Suspect]
     Dosage: 4 MIU, EVERY 2D
     Route: 058
  6. ARICEPT [Concomitant]
     Dosage: 10 MG, 1X/DAY
     Route: 048
  7. TENOLOL [Concomitant]
     Dosage: 50 MG, 1X/DAY
     Route: 048
  8. BACLOFEN [Concomitant]
     Dosage: 10 MG, 2PILLS AM
  9. BACLOFEN [Concomitant]
     Dosage: 10 MG, 1 PILL PM
  10. BENICAR HCT [Concomitant]
     Dosage: 25 MG, 1X/DAY
  11. CLONIDINE [Concomitant]
     Dosage: .2 MG, UNK
     Route: 048
  12. DETROL LA [Concomitant]
     Dosage: 4 MG, 1X/DAY
     Route: 048
  13. FIORINAL [Concomitant]
     Indication: HEADACHE
     Dosage: 40 MG, AS REQ'D
  14. FLUOXETINE [Concomitant]
     Dosage: 20 MG, 1X/DAY
     Route: 048
  15. FOSAMAX [Concomitant]
     Dosage: 70 MG, 1X/DAY
     Route: 048
  16. PROMETHAZINE HCL [Concomitant]
     Dosage: 25 MG, 1X/DAY
     Route: 048
  17. LASIX [Concomitant]
     Dosage: 20 MG, AS REQ'D
     Route: 048
  18. NORVASC [Concomitant]
     Dosage: 10 MG, 1X/DAY
     Route: 048
  19. OMEPRAZOLE [Concomitant]
     Dosage: 20 MG, 1X/DAY
     Route: 048
  20. POTASSIUM CHLORIDE [Concomitant]
     Dosage: UNK, 1X/DAY
     Route: 048
  21. TRAMADOL HCL [Concomitant]
     Dosage: 50 MG, 1X/DAY
     Route: 048
  22. TRILIP [Concomitant]
     Dosage: 450 MG, IN THE AM
  23. TRILIP [Concomitant]
     Dosage: 450 MG, IN THE PM
  24. TRILEPTAL [Concomitant]
     Dosage: 450 MG, 1X/DAY
  25. TYLENOL [Concomitant]

REACTIONS (8)
  - ASTHENIA [None]
  - BLOOD PRESSURE INCREASED [None]
  - BLOOD SODIUM ABNORMAL [None]
  - DIARRHOEA [None]
  - DISORIENTATION [None]
  - DIZZINESS [None]
  - NAUSEA [None]
  - VOMITING [None]
